FAERS Safety Report 5169914-1 (Version None)
Quarter: 2006Q4

REPORT INFORMATION
  Report Type: 
  Country: None (occurrence: None)
  Receive Date: 20061212
  Receipt Date: 20060824
  Transmission Date: 20070319
  Serious: Yes (Hospitalization)
  Sender: FDA-Public Use
  Company Number: US-ELI_LILLY_AND_COMPANY-US200609000233

PATIENT
  Age: 48 Year
  Sex: Female
  Weight: 90.702 kg

DRUGS (1)
  1. ZYPREXA [Suspect]
     Indication: DEPRESSION
     Dosage: 20 MG, UNKNOWN
     Dates: start: 20030101, end: 20040101

REACTIONS (3)
  - DIABETES MELLITUS [None]
  - INFECTION [None]
  - PULMONARY EMBOLISM [None]
